FAERS Safety Report 5743021-9 (Version None)
Quarter: 2008Q2

REPORT INFORMATION
  Report Type: 
  Country: None (occurrence: None)
  Receive Date: 20080515
  Receipt Date: 20080515
  Transmission Date: 20081010
  Serious: Yes (Other)
  Sender: FDA-Public Use
  Company Number: None

PATIENT
  Sex: Female
  Weight: 90.7194 kg

DRUGS (3)
  1. PREDNISONE [Suspect]
     Indication: BREAST CANCER METASTATIC
     Dosage: 1 - 20 MG/TABLE ONE A DAY PO
     Route: 048
     Dates: start: 20020601, end: 20080501
  2. PREDNISONE [Suspect]
     Indication: METASTASES TO LUNG
     Dosage: 1 - 20 MG/TABLE ONE A DAY PO
     Route: 048
     Dates: start: 20020601, end: 20080501
  3. PREDNISONE [Suspect]
     Dosage: 1 MG TABLES AS NEEDED PO
     Route: 048

REACTIONS (17)
  - ADRENAL DISORDER [None]
  - BACK DISORDER [None]
  - BACK PAIN [None]
  - BONE DISORDER [None]
  - CATARACT [None]
  - CONVULSION [None]
  - CRYING [None]
  - CUSHING'S SYNDROME [None]
  - EMOTIONAL DISORDER [None]
  - FOOT FRACTURE [None]
  - HYPERSOMNIA [None]
  - INFECTION [None]
  - MYOPATHY STEROID [None]
  - PAIN IN EXTREMITY [None]
  - TOOTH DISORDER [None]
  - VISUAL ACUITY REDUCED [None]
  - WALKING AID USER [None]
